FAERS Safety Report 8060396-9 (Version None)
Quarter: 2012Q1

REPORT INFORMATION
  Report Type: 
  Country: None (occurrence: None)
  Receive Date: 20120119
  Receipt Date: 20120119
  Transmission Date: 20120608
  Serious: Yes (Hospitalization)
  Sender: FDA-Public Use
  Company Number: None

PATIENT
  Age: 48 Year
  Sex: Male
  Weight: 71.5 kg

DRUGS (2)
  1. LOVENOX [Suspect]
     Dosage: 40MG Q24 SQ  RECENT
     Route: 058
  2. HEPARIN [Suspect]
     Indication: INTRAVENOUS CATHETER MANAGEMENT
     Dosage: 5000 U ONCE IV RECENT
     Route: 042

REACTIONS (9)
  - PULMONARY EMBOLISM [None]
  - RENAL FAILURE [None]
  - DEEP VEIN THROMBOSIS [None]
  - DYSPNOEA [None]
  - CHEST PAIN [None]
  - PNEUMONIA [None]
  - SEPSIS [None]
  - EMPYEMA [None]
  - THROMBOCYTOPENIA [None]
